FAERS Safety Report 12290296 (Version 1)
Quarter: 2016Q2

REPORT INFORMATION
  Report Type: Spontaneous
  Country: US (occurrence: None)
  Receive Date: 20160420
  Receipt Date: 20160420
  Transmission Date: 20160815
  Serious: No
  Sender: FDA-Public Use
  Company Number: None

PATIENT
  Age: 62 Year
  Sex: Female

DRUGS (8)
  1. NEURONTIN [Concomitant]
     Active Substance: GABAPENTIN
  2. ZOCOR [Concomitant]
     Active Substance: SIMVASTATIN
  3. SINGULAIR [Concomitant]
     Active Substance: MONTELUKAST SODIUM
  4. IBRANCE [Suspect]
     Active Substance: PALBOCICLIB
     Indication: BREAST CANCER
     Route: 048
     Dates: start: 20160323, end: 20160419
  5. MULTIVITAMIN [Concomitant]
     Active Substance: VITAMINS
  6. ALLEGRA [Concomitant]
     Active Substance: FEXOFENADINE HYDROCHLORIDE
  7. ENDOCET [Concomitant]
     Active Substance: ACETAMINOPHEN\OXYCODONE HYDROCHLORIDE
  8. NEULASTA [Concomitant]
     Active Substance: PEGFILGRASTIM

REACTIONS (2)
  - Fatigue [None]
  - Alopecia [None]

NARRATIVE: CASE EVENT DATE: 20160323
